FAERS Safety Report 12627781 (Version 1)
Quarter: 2016Q3

REPORT INFORMATION
  Report Type: Spontaneous
  Country: AT (occurrence: AT)
  Receive Date: 20160806
  Receipt Date: 20160806
  Transmission Date: 20161109
  Serious: Yes (Other)
  Sender: FDA-Public Use
  Company Number: AT-ACCORD-042860

PATIENT
  Age: 22 Year
  Sex: Male

DRUGS (7)
  1. TACROLIMUS. [Suspect]
     Active Substance: TACROLIMUS
     Indication: IMMUNOSUPPRESSION
  2. PREDNISONE. [Suspect]
     Active Substance: PREDNISONE
     Indication: DIFFUSE LARGE B-CELL LYMPHOMA
     Dosage: REDUCED-DOSE AT 1 M^2  INSTEAD OF 1.68 M^2
     Dates: start: 20150423
  3. RITUXIMAB [Suspect]
     Active Substance: RITUXIMAB
     Indication: DIFFUSE LARGE B-CELL LYMPHOMA
     Dosage: REDUCED-DOSE AT 1 M^2  INSTEAD OF 1.68 M^2
     Dates: start: 20150423
  4. CYCLOPHOSPHAMIDE/CYCLOPHOSPHAMIDE MONOHYDRATE [Suspect]
     Active Substance: CYCLOPHOSPHAMIDE
     Indication: DIFFUSE LARGE B-CELL LYMPHOMA
     Dosage: REDUCED-DOSE AT 1 M^2  INSTEAD OF 1.68 M^2
     Dates: start: 20150423
  5. VINCRISTINE [Suspect]
     Active Substance: VINCRISTINE
     Indication: DIFFUSE LARGE B-CELL LYMPHOMA
     Dosage: REDUCED-DOSE AT 1 M^2  INSTEAD OF 1.68 M^2
     Dates: start: 20150423
  6. ETOPOSIDE. [Suspect]
     Active Substance: ETOPOSIDE
     Indication: DIFFUSE LARGE B-CELL LYMPHOMA
     Dosage: REDUCED-DOSE AT 1 M^2  INSTEAD OF 1.68 M^2
     Dates: start: 20150423
  7. DOXORUBICIN [Suspect]
     Active Substance: DOXORUBICIN
     Indication: DIFFUSE LARGE B-CELL LYMPHOMA
     Dosage: REDUCED-DOSE AT 1 M^2  INSTEAD OF 1.68 M^2??CONTINUOUS ADMINISTRATION OVER 4 DAYS
     Dates: start: 20150423

REACTIONS (4)
  - Abdominal pain [Unknown]
  - Vomiting [Unknown]
  - Off label use [Unknown]
  - Febrile neutropenia [Unknown]

NARRATIVE: CASE EVENT DATE: 2015
